FAERS Safety Report 20535017 (Version 1)
Quarter: 2022Q1

REPORT INFORMATION
  Report Type: Spontaneous
  Country: US (occurrence: None)
  Receive Date: 20220302
  Receipt Date: 20220302
  Transmission Date: 20220423
  Serious: Yes (Hospitalization, Other)
  Sender: FDA-Public Use
  Company Number: US-MICRO LABS LIMITED-ML2022-00541

PATIENT
  Age: 56 Year
  Sex: Female

DRUGS (5)
  1. APIXABAN [Suspect]
     Active Substance: APIXABAN
     Indication: Anticoagulant therapy
  2. ASPIRIN [Concomitant]
     Active Substance: ASPIRIN
     Indication: Anticoagulant therapy
     Dosage: DAILY HIGHDOSE ASPIRIN 325 MG
  3. WARFARIN [Concomitant]
     Active Substance: WARFARIN
     Indication: Anticoagulant therapy
     Dosage: WARFARIN DOSE OF 15 MG DAILY
  4. WARFARIN [Concomitant]
     Active Substance: WARFARIN
     Dosage: UP-TITRATION OF WARFARIN TO DOSES AS HIGH AS 25 MG DAILY
  5. NITROFURANTOIN. [Concomitant]
     Indication: Urinary tract infection

REACTIONS (2)
  - Device related thrombosis [Unknown]
  - Upper gastrointestinal haemorrhage [Unknown]
